FAERS Safety Report 10865538 (Version 1)
Quarter: 2015Q1

REPORT INFORMATION
  Report Type: Report from Study
  Country: US (occurrence: US)
  Receive Date: 20150224
  Receipt Date: 20150224
  Transmission Date: 20150721
  Serious: Yes (Other)
  Sender: FDA-Public Use
  Company Number: US-MYLANLABS-2014S1011674

PATIENT
  Age: 38 Year
  Sex: Female
  Weight: 62.6 kg

DRUGS (8)
  1. AMNESTEEM [Suspect]
     Active Substance: ISOTRETINOIN
     Indication: ACNE
  2. AMNESTEEM [Suspect]
     Active Substance: ISOTRETINOIN
     Dosage: 40 MG,QOD
     Route: 048
     Dates: start: 201312, end: 20140325
  3. LEXAPRO [Concomitant]
     Active Substance: ESCITALOPRAM OXALATE
     Dosage: UNK
  4. AMNESTEEM [Suspect]
     Active Substance: ISOTRETINOIN
     Dosage: 40 MG,QD
     Route: 048
     Dates: start: 201311, end: 201312
  5. AMNESTEEM [Suspect]
     Active Substance: ISOTRETINOIN
     Dosage: 80 MG,QOD
     Route: 048
     Dates: start: 201312, end: 20140325
  6. AMINO ACIDS [Concomitant]
     Active Substance: AMINO ACIDS
     Dosage: UNK
  7. LO LOESTRIN FE [Concomitant]
     Active Substance: ETHINYL ESTRADIOL\NORETHINDRONE ACETATE
     Dosage: UNK
  8. NEURONTIN [Concomitant]
     Active Substance: GABAPENTIN
     Dosage: UNK

REACTIONS (1)
  - Benign intracranial hypertension [Recovered/Resolved]

NARRATIVE: CASE EVENT DATE: 20140325
